FAERS Safety Report 5611985-X (Version None)
Quarter: 2008Q1

REPORT INFORMATION
  Report Type: 
  Country: None (occurrence: None)
  Receive Date: 20080129
  Receipt Date: 20080129
  Transmission Date: 20080703
  Serious: Yes (Hospitalization)
  Sender: FDA-Public Use
  Company Number: None

PATIENT
  Age: 22 Year
  Sex: Female
  Weight: 63.7 kg

DRUGS (1)
  1. HEPARIN [Suspect]
     Indication: DIALYSIS
     Dosage: LOAD 1500, HOUR 1000 Q DIALYSIS RUN IV
     Route: 042

REACTIONS (10)
  - EYE SWELLING [None]
  - FACE OEDEMA [None]
  - FEELING COLD [None]
  - HYPOAESTHESIA [None]
  - HYPOAESTHESIA ORAL [None]
  - LIP SWELLING [None]
  - NAUSEA [None]
  - PALPITATIONS [None]
  - PHARYNGEAL HYPOAESTHESIA [None]
  - VOMITING [None]
